FAERS Safety Report 7674288-8 (Version None)
Quarter: 2011Q3

REPORT INFORMATION
  Report Type: 
  Country: None (occurrence: None)
  Receive Date: 20110810
  Receipt Date: 20110801
  Transmission Date: 20111222
  Serious: Yes (Other)
  Sender: FDA-Public Use
  Company Number: AT-GENENTECH-322534

PATIENT

DRUGS (1)
  1. RITUXIMAB [Suspect]
     Indication: NON-HODGKIN'S LYMPHOMA
     Dosage: UNK
     Route: 065

REACTIONS (5)
  - MUCOSAL INFLAMMATION [None]
  - LEUKOPENIA [None]
  - HAEMATOTOXICITY [None]
  - DYSPHAGIA [None]
  - STOMATITIS [None]
